FAERS Safety Report 4704161-6 (Version None)
Quarter: 2005Q2

REPORT INFORMATION
  Report Type: 
  Country: None (occurrence: None)
  Receive Date: 20050629
  Receipt Date: 20050621
  Transmission Date: 20051028
  Serious: Yes (Other)
  Sender: FDA-Public Use
  Company Number: ERD2003A00005

PATIENT
  Age: 61 Month
  Sex: Male

DRUGS (9)
  1. PIOGLITAZONE HCL [Suspect]
     Indication: DIABETES MELLITUS NON-INSULIN-DEPENDENT
     Dosage: 45 MG, ORAL
     Route: 048
     Dates: start: 20020213, end: 20021218
  2. METFORMIN (METFORMIN) [Suspect]
     Indication: DIABETES MELLITUS
     Dosage: ORAL
     Route: 048
     Dates: start: 19990101, end: 20021218
  3. SIMVASTATIN [Suspect]
     Indication: HYPERCHOLESTEROLAEMIA
     Dates: start: 20010101
  4. GLIMEPIRIDE [Concomitant]
  5. BISOPROLOL FUMARATE [Concomitant]
  6. PERINDOPRIL (PERINDOPRIL) [Concomitant]
  7. ACETYLSALICYLIC (ACETYSALICYLIC ACID) [Concomitant]
  8. LEVOTHYROXINE SODIUM [Concomitant]
  9. DIGOXIN [Concomitant]

REACTIONS (3)
  - ASCITES [None]
  - HEPATIC CIRRHOSIS [None]
  - WEIGHT DECREASED [None]
